FAERS Safety Report 25891813 (Version 1)
Quarter: 2025Q4

REPORT INFORMATION
  Report Type: Spontaneous
  Country: EU (occurrence: EU)
  Receive Date: 20251007
  Receipt Date: 20251007
  Transmission Date: 20260117
  Serious: Yes (Other)
  Sender: ALEXION PHARMACEUTICALS
  Company Number: EU-ASTRAZENECA-202510EEA001982CZ

PATIENT
  Age: 71 Year
  Sex: Male

DRUGS (3)
  1. IMFINZI [Suspect]
     Active Substance: DURVALUMAB
     Indication: Prostate cancer
     Route: 065
  2. IMFINZI [Suspect]
     Active Substance: DURVALUMAB
     Indication: Metastases to lung
  3. IMFINZI [Suspect]
     Active Substance: DURVALUMAB
     Indication: Metastases to diaphragm

REACTIONS (2)
  - Malignant neoplasm progression [Unknown]
  - Off label use [Unknown]
